FAERS Safety Report 5976403-0 (Version None)
Quarter: 2008Q4

REPORT INFORMATION
  Report Type: 
  Country: None (occurrence: None)
  Receive Date: 20081202
  Receipt Date: 20081119
  Transmission Date: 20090506
  Serious: Yes (Other)
  Sender: FDA-Public Use
  Company Number: DE-ELI_LILLY_AND_COMPANY-DE200811003597

PATIENT
  Sex: Male

DRUGS (5)
  1. CYMBALTA [Suspect]
     Indication: DEPRESSION
     Dosage: UPTO 60MG, DAILY (1/D)
     Route: 048
     Dates: start: 20080201, end: 20081101
  2. MIRTAZAPINE [Concomitant]
     Indication: AGITATED DEPRESSION
     Dosage: UPTO 60MG, UNKNOWN
     Route: 048
     Dates: start: 20080701, end: 20081101
  3. SIFROL [Concomitant]
     Indication: PARKINSON'S DISEASE
     Dosage: 0.35 MG, 3/D
     Route: 048
     Dates: start: 20080201
  4. SELEGILINE HCL [Concomitant]
     Indication: PARKINSON'S DISEASE
     Dosage: 5 MG, UNKNOWN
     Route: 065
  5. ZELDOX [Concomitant]
     Dosage: UNK, UNKNOWN
     Route: 065
     Dates: start: 20080701

REACTIONS (2)
  - CATARACT [None]
  - GLAUCOMA [None]
